FAERS Safety Report 6438538-8 (Version None)
Quarter: 2009Q4

REPORT INFORMATION
  Report Type: 
  Country: None (occurrence: None)
  Receive Date: 20091112
  Receipt Date: 20091027
  Transmission Date: 20100525
  Serious: Yes (Hospitalization)
  Sender: FDA-Public Use
  Company Number: US-GENENTECH-293532

PATIENT
  Sex: Male

DRUGS (3)
  1. AVASTIN [Suspect]
     Indication: COLON CANCER
     Dosage: UNK
     Route: 042
     Dates: start: 20081023, end: 20090521
  2. CAPECITABINE [Suspect]
     Indication: COLON CANCER
     Dosage: 1 G, BID
     Route: 048
     Dates: start: 20080910
  3. OXALIPLATIN [Suspect]
     Indication: COLON CANCER
     Dosage: UNK
     Route: 042
     Dates: start: 20090421, end: 20090521

REACTIONS (3)
  - PAIN IN EXTREMITY [None]
  - PYREXIA [None]
  - RASH GENERALISED [None]
